FAERS Safety Report 15237180 (Version 1)
Quarter: 2018Q3

REPORT INFORMATION
  Report Type: Report from Study
  Country: AU (occurrence: AU)
  Receive Date: 20180803
  Receipt Date: 20180803
  Transmission Date: 20181010
  Serious: Yes (Other)
  Sender: FDA-Public Use
  Company Number: AU-IBIGEN-2018.04597

PATIENT
  Age: 38 Year
  Sex: Female

DRUGS (2)
  1. UNK [Suspect]
     Active Substance: UNSPECIFIED INGREDIENT
     Dosage: ()
  2. VANCOMYCIN [Suspect]
     Active Substance: VANCOMYCIN
     Dosage: ()

REACTIONS (1)
  - Drug reaction with eosinophilia and systemic symptoms [Unknown]
